FAERS Safety Report 4471397-1 (Version None)
Quarter: 2004Q4

REPORT INFORMATION
  Report Type: 
  Country: None (occurrence: None)
  Receive Date: 20041012
  Receipt Date: 20040930
  Transmission Date: 20050328
  Serious: Yes (Hospitalization)
  Sender: FDA-Public Use
  Company Number: SE-BRISTOL-MYERS SQUIBB COMPANY-12718607

PATIENT
  Age: 19 Year
  Sex: Male

DRUGS (4)
  1. VEPESID [Suspect]
     Indication: HODGKIN'S DISEASE
     Dosage: LAST WEEK OF SEP-2004.
     Route: 042
     Dates: start: 20040901, end: 20040901
  2. CYCLOPHOSPHAMIDE [Concomitant]
  3. DOXORUBICIN [Concomitant]
  4. KYTRIL [Concomitant]
     Indication: PREMEDICATION

REACTIONS (4)
  - CONFUSIONAL STATE [None]
  - INCOHERENT [None]
  - NAUSEA [None]
  - RASH [None]
